FAERS Safety Report 7792288-4 (Version None)
Quarter: 2011Q3

REPORT INFORMATION
  Report Type: 
  Country: None (occurrence: None)
  Receive Date: 20110930
  Receipt Date: 20110930
  Transmission Date: 20111222
  Serious: Yes (Other)
  Sender: FDA-Public Use
  Company Number: None

PATIENT
  Age: 56 Year
  Sex: Male
  Weight: 73.9363 kg

DRUGS (2)
  1. L-TRYPTOPHAN, 500MG TAB DR'S BEST LOT #04654  EXP 7/2014 [Suspect]
     Indication: INSOMNIA
     Dosage: 500 - 1500MG QHS PO
     Route: 048
     Dates: start: 20110324
  2. L-TRYPTOPHAN, 500MG TAB DR'S BEST LOT #04654  EXP 7/2014 [Suspect]
     Indication: INSOMNIA
     Dosage: 500 - 1500MG QHS PO
     Route: 048
     Dates: start: 20110403

REACTIONS (1)
  - DIARRHOEA [None]
